FAERS Safety Report 8248708-4 (Version None)
Quarter: 2012Q1

REPORT INFORMATION
  Report Type: 
  Country: None (occurrence: None)
  Receive Date: 20120331
  Receipt Date: 20120326
  Transmission Date: 20120608
  Serious: Yes (Other)
  Sender: FDA-Public Use
  Company Number: PHHY2011CA23401

PATIENT
  Sex: Female

DRUGS (8)
  1. MODULON [Concomitant]
     Dosage: 200 TID PRN
  2. CLONAZEPAM [Concomitant]
     Dosage: 0.5 - 1/2 TABLET TID PRN
  3. PROZAC [Concomitant]
     Dosage: 20 - 2 DAILY
  4. OXYTROL [Concomitant]
     Dosage: 36 SKIN PATCHES 2 PER WEEK
  5. EURO-D [Concomitant]
     Dosage: 400 BID
  6. ZOLEDRONOC ACID [Suspect]
     Indication: OSTEOPOROSIS
     Dosage: 5 MG, YEARLY
     Route: 042
     Dates: start: 20110222
  7. HYDREA [Concomitant]
     Dosage: 500
  8. CRESTOR [Concomitant]
     Dosage: 5 HS

REACTIONS (9)
  - MUSCULAR WEAKNESS [None]
  - VIRAEMIA [None]
  - PYREXIA [None]
  - ORAL PAIN [None]
  - FEAR OF FALLING [None]
  - GINGIVAL PAIN [None]
  - MALAISE [None]
  - NASOPHARYNGITIS [None]
  - CHILLS [None]
